FAERS Safety Report 22168303 (Version 1)
Quarter: 2023Q2

REPORT INFORMATION
  Report Type: Report from Study
  Country: US (occurrence: US)
  Receive Date: 20230403
  Receipt Date: 20230403
  Transmission Date: 20230721
  Serious: Yes (Other)
  Sender: FDA-Public Use
  Company Number: US-ABBVIE-4712683

PATIENT
  Sex: Female

DRUGS (2)
  1. IMBRUVICA [Suspect]
     Active Substance: IBRUTINIB
     Indication: Chronic lymphocytic leukaemia
     Route: 048
     Dates: start: 20220810, end: 20230212
  2. IMBRUVICA [Suspect]
     Active Substance: IBRUTINIB
     Indication: Chronic lymphocytic leukaemia
     Route: 048
     Dates: start: 202302

REACTIONS (7)
  - Bone marrow transplant [Unknown]
  - Gingival bleeding [Unknown]
  - Fatigue [Unknown]
  - Hair growth rate abnormal [Unknown]
  - Solar lentigo [Unknown]
  - Rhinitis allergic [Unknown]
  - Allergy to animal [Unknown]
